FAERS Safety Report 15078965 (Version 1)
Quarter: 2018Q2

REPORT INFORMATION
  Report Type: Spontaneous
  Country: CA (occurrence: CA)
  Receive Date: 20180627
  Receipt Date: 20180627
  Transmission Date: 20180711
  Serious: Yes (Other)
  Sender: FDA-Public Use
  Company Number: CA-SAKK-2018SA152155AA

PATIENT
  Age: 55 Year
  Sex: Female

DRUGS (2)
  1. DOCETAXEL. [Suspect]
     Active Substance: DOCETAXEL
     Indication: BREAST CANCER
  2. CYCLOPHOSPHAMIDE. [Suspect]
     Active Substance: CYCLOPHOSPHAMIDE
     Indication: BREAST CANCER

REACTIONS (6)
  - Melaena [Recovered/Resolved]
  - Gastric ulcer perforation [Recovered/Resolved]
  - Extravasation [Recovered/Resolved]
  - Haematemesis [Recovered/Resolved]
  - Abdominal discomfort [Recovered/Resolved]
  - Perforation [Recovered/Resolved]
